FAERS Safety Report 8623360-4 (Version None)
Quarter: 2012Q3

REPORT INFORMATION
  Report Type: 
  Country: None (occurrence: None)
  Receive Date: 20120824
  Receipt Date: 20120824
  Transmission Date: 20120928
  Serious: Yes (Other)
  Sender: FDA-Public Use
  Company Number: None

PATIENT
  Sex: Female
  Weight: 88.4514 kg

DRUGS (2)
  1. HIZENTRA [Suspect]
     Dosage: QWK SC
     Route: 058
     Dates: start: 20120724
  2. HIZENTRA [Suspect]

REACTIONS (1)
  - RENAL FAILURE ACUTE [None]
